FAERS Safety Report 6109808-8 (Version None)
Quarter: 2009Q1

REPORT INFORMATION
  Report Type: 
  Country: None (occurrence: None)
  Receive Date: 20090310
  Receipt Date: 20080529
  Transmission Date: 20090719
  Serious: No
  Sender: FDA-Public Use
  Company Number: A0730044A

PATIENT
  Age: 48 Year
  Sex: Female

DRUGS (3)
  1. NICORETTE [Suspect]
     Dates: start: 20071201, end: 20080406
  2. NICORETTE [Suspect]
  3. NICORETTE (MINT) [Suspect]

REACTIONS (7)
  - BUCCAL MUCOSAL ROUGHENING [None]
  - GLOSSODYNIA [None]
  - INTENTIONAL DRUG MISUSE [None]
  - SPEECH DISORDER [None]
  - SWELLING FACE [None]
  - TONGUE DISORDER [None]
  - TONGUE ULCERATION [None]
